FAERS Safety Report 21292069 (Version 4)
Quarter: 2022Q4

REPORT INFORMATION
  Report Type: Report from Study
  Country: JP (occurrence: JP)
  Receive Date: 20220904
  Receipt Date: 20221020
  Transmission Date: 20230113
  Serious: Yes (Hospitalization)
  Sender: FDA-Public Use
  Company Number: JP-NOVARTISPH-NVSJ2022JP003923

PATIENT
  Age: 65 Year
  Sex: Female

DRUGS (1)
  1. TABRECTA [Suspect]
     Active Substance: CAPMATINIB
     Indication: Non-small cell lung cancer
     Dosage: 800 MG
     Route: 048
     Dates: start: 20211224, end: 20220204

REACTIONS (2)
  - Hepatic function abnormal [Recovering/Resolving]
  - Chromaturia [Unknown]

NARRATIVE: CASE EVENT DATE: 20220204
